FAERS Safety Report 7403574-1 (Version None)
Quarter: 2011Q2

REPORT INFORMATION
  Report Type: 
  Country: None (occurrence: None)
  Receive Date: 20110408
  Receipt Date: 20110405
  Transmission Date: 20111010
  Serious: Yes (Death, Hospitalization)
  Sender: FDA-Public Use
  Company Number: DK-PFIZER INC-2011052542

PATIENT
  Age: 62 Year
  Sex: Male

DRUGS (11)
  1. SERETIDE [Concomitant]
     Dosage: UNK
     Dates: start: 20101227
  2. HJERTEMAGNYL ^DAK^ [Concomitant]
     Dosage: 75 MG, DAILY
     Dates: start: 20101228
  3. SPIRIVA [Concomitant]
     Dosage: 18 UG, DAILY
     Dates: start: 20101227
  4. VENLAFAXINE [Concomitant]
     Dosage: 75 MG, DAILY
     Dates: start: 20101201
  5. CELECOXIB [Suspect]
     Indication: OSTEOARTHRITIS
     Dosage: 200 MG DAILY, AS NEEDED
     Dates: start: 20100623
  6. ZYPREXA [Concomitant]
     Dosage: 15 MG, DAILY
     Dates: start: 20101215
  7. AMLODIPINE BESILATE [Concomitant]
     Dosage: 10 MG, DAILY
     Dates: start: 20101209
  8. FURIX [Concomitant]
     Dosage: 80 MG, 2X/DAY
     Dates: start: 20110105
  9. SELO-ZOK [Concomitant]
     Dosage: 100 MG, DAILY
     Dates: start: 20101216
  10. NOVOMIX [Concomitant]
     Dosage: UNK
     Dates: start: 20110111
  11. VENTOLIN [Concomitant]
     Dosage: UNK
     Dates: start: 20110105

REACTIONS (5)
  - CHRONIC OBSTRUCTIVE PULMONARY DISEASE [None]
  - DIABETES MELLITUS [None]
  - RESPIRATORY FAILURE [None]
  - DEATH [None]
  - PNEUMONIA [None]
